FAERS Safety Report 5702482-1 (Version None)
Quarter: 2008Q2

REPORT INFORMATION
  Report Type: 
  Country: None (occurrence: None)
  Receive Date: 20080411
  Receipt Date: 20080331
  Transmission Date: 20081010
  Serious: Yes (Hospitalization)
  Sender: FDA-Public Use
  Company Number: JP-BRISTOL-MYERS SQUIBB COMPANY-14141337

PATIENT
  Age: 66 Year
  Sex: Female

DRUGS (9)
  1. SINEMET [Suspect]
     Indication: PARKINSON'S DISEASE
     Dosage: STARTED BEFORE 30 YEARS.
     Route: 048
  2. SYMMETREL [Suspect]
     Indication: PARKINSON'S DISEASE
     Dosage: TAKEN AS TABS.
     Route: 048
  3. DROXIDOPA [Suspect]
     Indication: PARKINSON'S DISEASE
     Dosage: DOSE INCREASED TO 600 MG, DOSE FORM=TABLET
     Route: 048
  4. CINAL S [Suspect]
     Indication: PARKINSON'S DISEASE
     Dosage: STARTED 2-3 YEARS AGO. GRANULES.
     Route: 048
  5. SIFROL [Suspect]
     Indication: PARKINSON'S DISEASE
     Dosage: TAKEN AS TABS.
     Route: 048
     Dates: start: 20071001
  6. GLYSENNID [Suspect]
     Indication: PARKINSON'S DISEASE
     Dosage: STARTED 1-2 YEARS AGO.
     Route: 048
  7. ZONISAMIDE [Suspect]
     Indication: PARKINSON'S DISEASE
     Dosage: TAKEN AS TABS; STARTED 1-2 YEARS AGO.
     Route: 048
  8. BLADDERON [Concomitant]
  9. PRAVASTATIN SODIUM [Concomitant]

REACTIONS (1)
  - ERYTHROMELALGIA [None]
